FAERS Safety Report 24130835 (Version 10)
Quarter: 2025Q2

REPORT INFORMATION
  Report Type: Report from Study
  Country: US (occurrence: US)
  Receive Date: 20240724
  Receipt Date: 20250619
  Transmission Date: 20250717
  Serious: Yes (Other)
  Sender: NOVARTIS
  Company Number: US-002147023-NVSC2024US087484

PATIENT
  Age: 43 Year
  Sex: Female

DRUGS (10)
  1. KESIMPTA [Suspect]
     Active Substance: OFATUMUMAB
     Indication: Product used for unknown indication
     Dosage: 20 MG, QMO
     Route: 058
  2. KESIMPTA [Suspect]
     Active Substance: OFATUMUMAB
     Route: 065
     Dates: start: 202402
  3. KESIMPTA [Suspect]
     Active Substance: OFATUMUMAB
     Route: 065
  4. BACLOFEN [Concomitant]
     Active Substance: BACLOFEN
     Indication: Product used for unknown indication
     Route: 065
  5. MODAFINIL [Concomitant]
     Active Substance: MODAFINIL
     Indication: Product used for unknown indication
     Route: 065
  6. AMANTADINE [Concomitant]
     Active Substance: AMANTADINE
     Indication: Product used for unknown indication
     Route: 065
  7. CHOLECALCIFEROL [Concomitant]
     Active Substance: CHOLECALCIFEROL
     Indication: Product used for unknown indication
     Route: 065
  8. LOSARTAN [Concomitant]
     Active Substance: LOSARTAN
     Indication: Product used for unknown indication
     Route: 065
  9. METFORMIN [Concomitant]
     Active Substance: METFORMIN HYDROCHLORIDE
     Indication: Product used for unknown indication
     Route: 065
  10. VENLAFAXINE [Concomitant]
     Active Substance: VENLAFAXINE HYDROCHLORIDE
     Indication: Product used for unknown indication
     Route: 065

REACTIONS (24)
  - Multiple sclerosis relapse [Unknown]
  - Muscle fatigue [Unknown]
  - Muscle tightness [Unknown]
  - Hypoaesthesia [Unknown]
  - Joint stiffness [Unknown]
  - Electric shock sensation [Unknown]
  - Confusional state [Recovered/Resolved]
  - Memory impairment [Recovered/Resolved]
  - Stress [Recovered/Resolved]
  - Arthralgia [Recovered/Resolved]
  - Joint lock [Recovered/Resolved]
  - Muscle spasms [Recovered/Resolved]
  - Asthenia [Recovered/Resolved]
  - Chills [Recovered/Resolved]
  - Influenza like illness [Recovered/Resolved]
  - Decreased immune responsiveness [Unknown]
  - Nasopharyngitis [Not Recovered/Not Resolved]
  - Limb discomfort [Unknown]
  - Disturbance in attention [Unknown]
  - Injection site bruising [Unknown]
  - Tremor [Unknown]
  - Injection site pain [Unknown]
  - Device malfunction [Unknown]
  - Accidental exposure to product [Unknown]

NARRATIVE: CASE EVENT DATE: 20250228
